FAERS Safety Report 4667484-5 (Version None)
Quarter: 2005Q2

REPORT INFORMATION
  Report Type: 
  Country: None (occurrence: None)
  Receive Date: 20050520
  Receipt Date: 20050510
  Transmission Date: 20051028
  Serious: Yes (Other)
  Sender: FDA-Public Use
  Company Number: 200514051US

PATIENT
  Sex: Female

DRUGS (2)
  1. KETEK [Suspect]
     Indication: SINUSITIS
     Dosage: DOSE: TWO 400MG TABLETS
  2. ANTIDEPRESSANTS [Concomitant]
     Dosage: DOSE: UNKNOWN

REACTIONS (1)
  - GRAND MAL CONVULSION [None]
